FAERS Safety Report 12499086 (Version 1)
Quarter: 2016Q2

REPORT INFORMATION
  Report Type: Spontaneous
  Country: US (occurrence: US)
  Receive Date: 20160627
  Receipt Date: 20160627
  Transmission Date: 20160815
  Serious: Yes (Other)
  Sender: FDA-Public Use
  Company Number: US-JNJCP-30000342554

PATIENT
  Sex: Male
  Weight: 82 kg

DRUGS (1)
  1. NEUTROGENA ULTRA SHEER DRY TOUCH SUNBLOCK SPF 100 PLUS [Suspect]
     Active Substance: AVOBENZONE\HOMOSALATE\OCTISALATE\OCTOCRYLENE\OXYBENZONE
     Indication: PROPHYLAXIS
     Dosage: A LOT, THREE TO FOUR TIMES
     Route: 061

REACTIONS (3)
  - Application site papules [Recovering/Resolving]
  - Throat tightness [Recovering/Resolving]
  - Application site swelling [Recovering/Resolving]

NARRATIVE: CASE EVENT DATE: 201606
